FAERS Safety Report 6032677-1 (Version None)
Quarter: 2009Q1

REPORT INFORMATION
  Report Type: 
  Country: None (occurrence: None)
  Receive Date: 20090107
  Receipt Date: 20090107
  Transmission Date: 20090719
  Serious: No
  Sender: FDA-Public Use
  Company Number: None

PATIENT
  Sex: Male
  Weight: 96.1626 kg

DRUGS (2)
  1. XELODA [Suspect]
     Dosage: 750 MG/M2 PO
     Route: 048
     Dates: start: 20081112
  2. LOVENOX [Concomitant]

REACTIONS (1)
  - PULMONARY EMBOLISM [None]
